FAERS Safety Report 6845721-6 (Version None)
Quarter: 2010Q3

REPORT INFORMATION
  Report Type: 
  Country: None (occurrence: None)
  Receive Date: 20100715
  Receipt Date: 20070822
  Transmission Date: 20110219
  Serious: No
  Sender: FDA-Public Use
  Company Number: US-PFIZER INC-2007072016

PATIENT
  Sex: Female

DRUGS (5)
  1. CHANTIX [Suspect]
     Indication: SMOKING CESSATION THERAPY
     Dates: start: 20070801, end: 20070821
  2. LIPITOR [Concomitant]
  3. INSULIN [Concomitant]
  4. PREMARIN [Concomitant]
  5. NAPROXEN [Concomitant]

REACTIONS (4)
  - HEADACHE [None]
  - NAUSEA [None]
  - RASH [None]
  - VOMITING [None]
